FAERS Safety Report 11980181 (Version 1)
Quarter: 2016Q1

REPORT INFORMATION
  Report Type: Report from Study
  Country: US (occurrence: US)
  Receive Date: 20160129
  Receipt Date: 20160129
  Transmission Date: 20160526
  Serious: No
  Sender: FDA-Public Use
  Company Number: US-ABBVIE-15K-163-1413148-00

PATIENT
  Age: 76 Year
  Sex: Female

DRUGS (1)
  1. HUMIRA [Suspect]
     Active Substance: ADALIMUMAB
     Indication: PSORIATIC ARTHROPATHY
     Route: 065
     Dates: start: 20150601, end: 20150727

REACTIONS (6)
  - Asthenia [Unknown]
  - Nodule [Unknown]
  - Drug effect incomplete [Unknown]
  - Drug ineffective [Unknown]
  - Tendonitis [Unknown]
  - Neck pain [Unknown]

NARRATIVE: CASE EVENT DATE: 2015
